FAERS Safety Report 4434066-X (Version None)
Quarter: 2004Q3

REPORT INFORMATION
  Report Type: 
  Country: None (occurrence: None)
  Receive Date: 20040825
  Receipt Date: 20040809
  Transmission Date: 20050211
  Serious: Yes (Life-Threatening, Hospitalization, Congenital Anomaly)
  Sender: FDA-Public Use
  Company Number: EWC040840251

PATIENT
  Sex: Male
  Weight: 3 kg

DRUGS (3)
  1. PROZAC [Suspect]
     Dates: start: 20040101, end: 20040429
  2. AMITRIPTYLINE WITH PERPHENAZINE [Concomitant]
  3. DIAZEPAM [Concomitant]

REACTIONS (4)
  - DRUG EXPOSURE DURING PREGNANCY [None]
  - FOETAL GROWTH RETARDATION [None]
  - NEONATAL DIABETES MELLITUS [None]
  - PREMATURE BABY [None]
